FAERS Safety Report 13649024 (Version 1)
Quarter: 2017Q2

REPORT INFORMATION
  Report Type: Spontaneous
  Country: US (occurrence: US)
  Receive Date: 20170613
  Receipt Date: 20170613
  Transmission Date: 20170830
  Serious: Yes (Other)
  Sender: FDA-Public Use
  Company Number: US-TARO-2017TAR00456

PATIENT
  Sex: Male

DRUGS (2)
  1. AMIODARONE HCL TABLET 200 MG [Suspect]
     Active Substance: AMIODARONE HYDROCHLORIDE
     Indication: ATRIAL FIBRILLATION
     Dosage: UNK
     Route: 048
     Dates: start: 201501
  2. UNSPECIFIED MEDICATIONS [Suspect]
     Active Substance: UNSPECIFIED INGREDIENT

REACTIONS (12)
  - Depression [Unknown]
  - Weight decreased [Unknown]
  - Off label use [Unknown]
  - Anaemia [Unknown]
  - Fatigue [Unknown]
  - Disturbance in attention [Unknown]
  - Haemorrhage [Unknown]
  - Asthenia [Unknown]
  - Irritability [Unknown]
  - Restlessness [Unknown]
  - Pulmonary fibrosis [Unknown]
  - Nervousness [Unknown]

NARRATIVE: CASE EVENT DATE: 201501
